FAERS Safety Report 8026011-5 (Version None)
Quarter: 2012Q1

REPORT INFORMATION
  Report Type: 
  Country: None (occurrence: None)
  Receive Date: 20120105
  Receipt Date: 20110118
  Transmission Date: 20120608
  Serious: No
  Sender: FDA-Public Use
  Company Number: US-ABBOTT-11P-163-0699893-00

PATIENT
  Sex: Female
  Weight: 66.738 kg

DRUGS (1)
  1. SYNTHROID [Suspect]
     Indication: AUTOIMMUNE THYROIDITIS
     Dates: start: 19700101

REACTIONS (4)
  - NASOPHARYNGITIS [None]
  - ABDOMINAL DISCOMFORT [None]
  - COELIAC DISEASE [None]
  - PRURITUS [None]
